FAERS Safety Report 13580740 (Version 1)
Quarter: 2017Q2

REPORT INFORMATION
  Report Type: Spontaneous
  Country: US (occurrence: US)
  Receive Date: 20170525
  Receipt Date: 20170525
  Transmission Date: 20170830
  Serious: Yes (Hospitalization, Other)
  Sender: FDA-Public Use
  Company Number: None

PATIENT
  Age: 58 Year
  Sex: Female

DRUGS (1)
  1. SYNTHROID [Suspect]
     Active Substance: LEVOTHYROXINE SODIUM
     Indication: HYPOTHYROIDISM
     Route: 048
     Dates: start: 20170508

REACTIONS (6)
  - Vertigo [None]
  - Abdominal pain upper [None]
  - Nausea [None]
  - Dizziness [None]
  - Product quality issue [None]
  - Accident [None]

NARRATIVE: CASE EVENT DATE: 20170503
